FAERS Safety Report 9444392 (Version 1)
Quarter: 2013Q3

REPORT INFORMATION
  Report Type: Report from Study
  Country: CA (occurrence: CA)
  Receive Date: 20130807
  Receipt Date: 20130807
  Transmission Date: 20140515
  Serious: Yes (Hospitalization)
  Sender: FDA-Public Use
  Company Number: CA-JNJFOC-20130719128

PATIENT
  Sex: Male
  Weight: 72.58 kg

DRUGS (2)
  1. REMICADE [Suspect]
     Indication: CROHN^S DISEASE
     Dosage: DURATION FOR PAST ONE YEAR
     Route: 042
     Dates: start: 2012
  2. REMICADE [Suspect]
     Indication: CROHN^S DISEASE
     Route: 042
     Dates: start: 2013

REACTIONS (5)
  - Crohn^s disease [Unknown]
  - Weight decreased [Unknown]
  - Decreased appetite [Unknown]
  - Pyrexia [Unknown]
  - Arthralgia [Unknown]
